FAERS Safety Report 5374706-4 (Version None)
Quarter: 2007Q2

REPORT INFORMATION
  Report Type: 
  Country: None (occurrence: None)
  Receive Date: 20070621
  Receipt Date: 20070511
  Transmission Date: 20071010
  Serious: Yes (Other)
  Sender: FDA-Public Use
  Company Number: 13777214

PATIENT
  Sex: Female

DRUGS (1)
  1. EMSAM [Suspect]

REACTIONS (1)
  - PALPITATIONS [None]
